FAERS Safety Report 14122512 (Version 11)
Quarter: 2018Q2

REPORT INFORMATION
  Report Type: Spontaneous
  Country: US (occurrence: US)
  Receive Date: 20171024
  Receipt Date: 20180530
  Transmission Date: 20180711
  Serious: Yes (Death, Hospitalization)
  Sender: FDA-Public Use
  Company Number: US-ACTELION-A-NJ2017-161215

PATIENT
  Age: 39 Year
  Sex: Female
  Weight: 88.44 kg

DRUGS (4)
  1. VELETRI [Suspect]
     Active Substance: EPOPROSTENOL
     Indication: PULMONARY ARTERIAL HYPERTENSION
     Dosage: 8.5 NG/KG, PER MIN
     Route: 042
  2. VELETRI [Suspect]
     Active Substance: EPOPROSTENOL
     Dosage: 10.5 NG/KG, PER MIN
     Route: 042
  3. SILDENAFIL. [Concomitant]
     Active Substance: SILDENAFIL
  4. OPSUMIT [Suspect]
     Active Substance: MACITENTAN
     Indication: PULMONARY ARTERIAL HYPERTENSION
     Dosage: 10 MG, QD
     Route: 048
     Dates: start: 20171024

REACTIONS (28)
  - Weight decreased [Unknown]
  - Catheter site nodule [Unknown]
  - Death [Fatal]
  - Chest pain [Unknown]
  - Loss of consciousness [Unknown]
  - Diarrhoea [Unknown]
  - Dizziness [Unknown]
  - Decreased appetite [Unknown]
  - Vomiting [Unknown]
  - Headache [Unknown]
  - Asthenia [Unknown]
  - Product preparation error [Recovered/Resolved]
  - Dyspnoea [Unknown]
  - Fluid overload [Recovering/Resolving]
  - Epistaxis [Unknown]
  - Catheter site rash [Unknown]
  - Hypotension [Unknown]
  - Catheter site discharge [Unknown]
  - Abdominal cavity drainage [Unknown]
  - Flushing [Unknown]
  - Fluid retention [Unknown]
  - Pyrexia [Unknown]
  - Nausea [Unknown]
  - Pulmonary arterial hypertension [Recovering/Resolving]
  - Ascites [Unknown]
  - Paracentesis [Unknown]
  - Abdominal distension [Recovering/Resolving]
  - Catheter site erythema [Unknown]

NARRATIVE: CASE EVENT DATE: 20171013
